FAERS Safety Report 5863811-1 (Version None)
Quarter: 2008Q3

REPORT INFORMATION
  Report Type: 
  Country: None (occurrence: None)
  Receive Date: 20080827
  Receipt Date: 20080813
  Transmission Date: 20090109
  Serious: Yes (Other)
  Sender: FDA-Public Use
  Company Number: TRP_05858_2008

PATIENT
  Sex: Male

DRUGS (5)
  1. INFERGEN [Suspect]
     Indication: HEPATITIS C
     Dosage: (15 UG QD SUBCUTANEOUS)
     Route: 058
     Dates: start: 20080101
  2. RIBAVIRIN [Suspect]
     Indication: HEPATITIS C
     Dosage: (1000 MG QD ORAL)
     Route: 048
  3. LISINOPRIL [Concomitant]
  4. TOPROL-XL [Concomitant]
  5. EFFEXOR XR [Concomitant]

REACTIONS (7)
  - BLOOD URIC ACID INCREASED [None]
  - INJECTION SITE DISCOLOURATION [None]
  - INJECTION SITE PAIN [None]
  - INJECTION SITE PRURITUS [None]
  - INJECTION SITE ULCER [None]
  - NEPHROLITHIASIS [None]
  - RENAL IMPAIRMENT [None]
